FAERS Safety Report 25012337 (Version 1)
Quarter: 2025Q1

REPORT INFORMATION
  Report Type: Spontaneous
  Country: IN (occurrence: IN)
  Receive Date: 20250226
  Receipt Date: 20250226
  Transmission Date: 20250409
  Serious: Yes (Other)
  Sender: MACLEODS
  Company Number: IN-MLMSERVICE-20250207-PI399726-00322-1

PATIENT

DRUGS (1)
  1. TRAMADOL [Suspect]
     Active Substance: TRAMADOL
     Indication: Product used for unknown indication
     Route: 042

REACTIONS (10)
  - Generalised tonic-clonic seizure [Unknown]
  - Venous thrombosis [Unknown]
  - Intentional product misuse [Unknown]
  - Drug dependence [Unknown]
  - Restlessness [Unknown]
  - Myalgia [Unknown]
  - Weight decreased [Unknown]
  - Disturbance in attention [Unknown]
  - Disturbance in attention [Unknown]
  - Sleep disorder [Unknown]
